FAERS Safety Report 5000057-3 (Version None)
Quarter: 2006Q2

REPORT INFORMATION
  Report Type: 
  Country: None (occurrence: None)
  Receive Date: 20060501
  Receipt Date: 20060419
  Transmission Date: 20061013
  Serious: No
  Sender: FDA-Public Use
  Company Number: 2006020700

PATIENT
  Age: 80 Year
  Sex: Male
  Weight: 56 kg

DRUGS (13)
  1. IRINOTECAN HCL [Suspect]
     Indication: COLORECTAL CANCER RECURRENT
     Dosage: 120 MG (40 MG, 3 IN 1 D (1 IN 2 WEEKS)), INTRAVENOUS
     Route: 042
     Dates: start: 20051206, end: 20051221
  2. IRINOTECAN HCL [Suspect]
     Indication: METASTASES TO LIVER
     Dosage: 120 MG (40 MG, 3 IN 1 D (1 IN 2 WEEKS)), INTRAVENOUS
     Route: 042
     Dates: start: 20051206, end: 20051221
  3. IRINOTECAN HCL [Suspect]
     Indication: METASTASES TO PERITONEUM
     Dosage: 120 MG (40 MG, 3 IN 1 D (1 IN 2 WEEKS)), INTRAVENOUS
     Route: 042
     Dates: start: 20051206, end: 20051221
  4. VEEN-F (CALCIUM CHLORIDE ANHYDROUS, MAGNESIUM CHLORIDE ANHYDROUS, POTA [Concomitant]
  5. MUCOSTA (REBAMIPIDE) [Concomitant]
  6. URSO 250 [Concomitant]
  7. RHYTHMY (RILMAZAFONE) [Concomitant]
  8. MAGNESIUM OXIDE [Concomitant]
  9. LASIX [Concomitant]
  10. LOXONIN (LOXOPROFEN SODIUM) [Concomitant]
  11. NOVOLIN R [Concomitant]
  12. VOLTAREN [Concomitant]
  13. BIOFERMIN (BACILLUS SUBTILIS, LACTOBACILLUS ACIDOPHILUS, STREPTOCOCCUS [Concomitant]

REACTIONS (5)
  - BLOOD GLUCOSE INCREASED [None]
  - BLOOD LACTATE DEHYDROGENASE INCREASED [None]
  - CACHEXIA [None]
  - HAEMOTHORAX [None]
  - PROTEIN TOTAL DECREASED [None]
